FAERS Safety Report 24468004 (Version 3)
Quarter: 2025Q2

REPORT INFORMATION
  Report Type: Spontaneous
  Country: CN (occurrence: CN)
  Receive Date: 20241018
  Receipt Date: 20250608
  Transmission Date: 20250716
  Serious: Yes (Other)
  Sender: COHERUS
  Company Number: CN-SHANGHAI JUNSHI BIOSCIENCES CO., LTD.-CN2024011622

PATIENT

DRUGS (2)
  1. TORIPALIMAB [Suspect]
     Active Substance: TORIPALIMAB
     Indication: Tumour of ampulla of Vater
     Route: 041
     Dates: start: 20240911, end: 20240911
  2. CISPLATIN [Suspect]
     Active Substance: CISPLATIN
     Indication: Tumour of ampulla of Vater
     Dosage: 30 MG, QD
     Route: 041
     Dates: start: 20240912, end: 20240912

REACTIONS (1)
  - Myelosuppression [Recovering/Resolving]

NARRATIVE: CASE EVENT DATE: 20240921
